FAERS Safety Report 23410002 (Version 1)
Quarter: 2024Q1

REPORT INFORMATION
  Report Type: Spontaneous
  Country: US (occurrence: None)
  Receive Date: 20240116
  Receipt Date: 20240116
  Transmission Date: 20240410
  Serious: Yes (Hospitalization)
  Sender: FDA-Public Use
  Company Number: None

PATIENT
  Sex: Female

DRUGS (1)
  1. IBRANCE [Suspect]
     Active Substance: PALBOCICLIB
     Indication: Breast cancer male
     Dosage: 100MG ORAL?TAKE 1  CAPSULE BY MOUTH 1 TIME A DAY FOR 21DAYS OF A 28 DAY CYCLE.
     Route: 048
     Dates: start: 202309

REACTIONS (1)
  - Hospitalisation [None]
